FAERS Safety Report 8590809 (Version 2)
Quarter: 2012Q4

REPORT INFORMATION
  Report Type: 
  Country: US (occurrence: US)
  Receive Date: 20120601
  Receipt Date: 20121010
  Transmission Date: 20130627
  Serious: Yes (Hospitalization)
  Sender: FDA-Public Use
  Company Number: US-BAYER-2012-053915

PATIENT
  Age: 25 Year
  Sex: Female
  Weight: 136 kg

DRUGS (6)
  1. YAZ [Suspect]
     Indication: CONTRACEPTION
     Dosage: UNK
     Dates: start: 201006, end: 201008
  2. LEVORA [Concomitant]
  3. SERTRALINE [Concomitant]
     Indication: DEPRESSION
     Dosage: 100 mg, QD
     Dates: start: 201001
  4. OMEPRAZOLE [Concomitant]
     Dosage: 20 mg, QD
  5. NAPROXEN [Concomitant]
  6. DILAUDID [Concomitant]

REACTIONS (9)
  - Pulmonary embolism [None]
  - Pelvic venous thrombosis [None]
  - Deep vein thrombosis [None]
  - Injury [None]
  - Pain [None]
  - General physical health deterioration [None]
  - Anxiety [None]
  - Emotional distress [None]
  - Pain [None]
